FAERS Safety Report 4333645-8 (Version None)
Quarter: 2004Q2

REPORT INFORMATION
  Report Type: 
  Country: None (occurrence: None)
  Receive Date: 20040402
  Receipt Date: 20040317
  Transmission Date: 20050107
  Serious: Yes (Hospitalization)
  Sender: FDA-Public Use
  Company Number: A03200400833

PATIENT
  Age: 45 Year
  Sex: Male
  Weight: 80 kg

DRUGS (8)
  1. PLAVIX [Suspect]
     Indication: ANTIPLATELET THERAPY
     Dosage: 75 MG QD - ORAL
     Route: 048
     Dates: start: 20020909, end: 20031013
  2. ANGIOMAX - BIVALIRUDIN - SOLUTION - 200 MG [Suspect]
     Indication: ANTICOAGULANT THERAPY
     Dosage: 200 MG ONCE - INTRAVENOUS NOS
     Route: 042
     Dates: start: 20031017, end: 20031017
  3. INTEGRILIN [Suspect]
     Indication: ANTIPLATELET THERAPY
     Dates: end: 20031016
  4. CARVEDILOL [Concomitant]
  5. ATORVASTATIN [Concomitant]
  6. QUINAPRIL HYDROCHLORIDE [Concomitant]
  7. ASPIRIN [Concomitant]
  8. GLYCERYL TRINITRATE [Concomitant]

REACTIONS (10)
  - ACUTE RESPIRATORY DISTRESS SYNDROME [None]
  - ANXIETY [None]
  - ATELECTASIS [None]
  - CONFUSIONAL STATE [None]
  - LUNG INFILTRATION [None]
  - PLEURAL EFFUSION [None]
  - PULMONARY CONGESTION [None]
  - PULMONARY OEDEMA [None]
  - PYREXIA [None]
  - RESPIRATORY FAILURE [None]
